FAERS Safety Report 8340406-1 (Version None)
Quarter: 2012Q2

REPORT INFORMATION
  Report Type: 
  Country: None (occurrence: None)
  Receive Date: 20120507
  Receipt Date: 20120507
  Transmission Date: 20120825
  Serious: Yes (Other)
  Sender: FDA-Public Use
  Company Number: None

PATIENT
  Age: 21 Year
  Sex: Male
  Weight: 77.11 kg

DRUGS (2)
  1. LEVOFLOXACIN [Suspect]
     Indication: EPIDIDYMITIS
     Dosage: |DOSAGETEXT: 500MG||STRENGTH: 500MG||FREQ: 1 X DAY||ROUTE: ORAL|
     Route: 048
     Dates: start: 20090515, end: 20090525
  2. LEVOFLOXACIN [Suspect]
     Indication: ORCHITIS NONINFECTIVE
     Dosage: |DOSAGETEXT: 500MG||STRENGTH: 500MG||FREQ: 1 X DAY||ROUTE: ORAL|
     Route: 048
     Dates: start: 20090515, end: 20090525

REACTIONS (11)
  - MUSCULAR WEAKNESS [None]
  - CHEST PAIN [None]
  - COGNITIVE DISORDER [None]
  - ANXIETY [None]
  - HYPOAESTHESIA [None]
  - TENDONITIS [None]
  - PARAESTHESIA [None]
  - DRY MOUTH [None]
  - HEART RATE ABNORMAL [None]
  - PAIN [None]
  - INSOMNIA [None]
